FAERS Safety Report 7940362-1 (Version None)
Quarter: 2011Q4

REPORT INFORMATION
  Report Type: 
  Country: None (occurrence: None)
  Receive Date: 20111127
  Receipt Date: 20111115
  Transmission Date: 20120403
  Serious: Yes (Hospitalization)
  Sender: FDA-Public Use
  Company Number: US-ELI_LILLY_AND_COMPANY-US201109004165

PATIENT
  Sex: Female

DRUGS (11)
  1. FORTEO [Suspect]
     Dosage: 20 UG, QD
     Dates: end: 20110101
  2. CALCIUM [Concomitant]
     Dosage: 1800 MG, QD
  3. SPIRONOLACTONE [Concomitant]
     Dosage: UNK, QD
  4. VITAMIN TAB [Concomitant]
     Dosage: UNK, QD
  5. NADOLOL [Concomitant]
     Dosage: UNK, QD
  6. NEXIUM [Concomitant]
     Indication: GASTRIC DISORDER
     Dosage: UNK, QD
  7. CITRACAL [Concomitant]
  8. FORTEO [Suspect]
     Indication: OSTEOPOROSIS
     Dosage: 20 UG, QD
     Route: 065
     Dates: start: 20110701
  9. AMBIEN [Concomitant]
     Dosage: UNK, PRN
  10. FORTEO [Suspect]
     Dosage: 20 UG, QD
  11. CALCIUM [Concomitant]

REACTIONS (9)
  - HEART RATE INCREASED [None]
  - ARTHRALGIA [None]
  - BLOOD CALCIUM INCREASED [None]
  - LIMB DISCOMFORT [None]
  - URINE ODOUR ABNORMAL [None]
  - THORACIC VERTEBRAL FRACTURE [None]
  - MUSCULOSKELETAL DISCOMFORT [None]
  - BACK PAIN [None]
  - MOVEMENT DISORDER [None]
